FAERS Safety Report 19297302 (Version 2)
Quarter: 2021Q3

REPORT INFORMATION
  Report Type: Spontaneous
  Country: US (occurrence: US)
  Receive Date: 20210524
  Receipt Date: 20210705
  Transmission Date: 20211014
  Serious: No
  Sender: FDA-Public Use
  Company Number: NVSC2021US114203

PATIENT
  Sex: Female

DRUGS (2)
  1. PATADAY [Suspect]
     Active Substance: OLOPATADINE HYDROCHLORIDE
     Indication: INJURY CORNEAL
     Dosage: UNK
     Route: 065
  2. PATADAY [Suspect]
     Active Substance: OLOPATADINE HYDROCHLORIDE
     Indication: EYE IRRITATION

REACTIONS (3)
  - Eye pain [Unknown]
  - Off label use [Unknown]
  - Eye irritation [Unknown]
